FAERS Safety Report 4760423-8 (Version None)
Quarter: 2005Q3

REPORT INFORMATION
  Report Type: 
  Country: None (occurrence: None)
  Receive Date: 20050902
  Receipt Date: 20050726
  Transmission Date: 20060218
  Serious: Yes (Other)
  Sender: FDA-Public Use
  Company Number: 2005PK01362

PATIENT
  Age: 472 Month
  Sex: Female

DRUGS (20)
  1. SEROQUEL [Suspect]
     Indication: MANIA
     Dosage: 50 MG UP TO 400 MG
     Dates: start: 20050301
  2. SEROQUEL [Suspect]
     Indication: BIPOLAR DISORDER
     Dosage: 50 MG UP TO 400 MG
     Dates: start: 20050301
  3. SEROQUEL [Suspect]
     Dates: start: 20050501, end: 20050524
  4. SEROQUEL [Suspect]
     Dates: start: 20050501, end: 20050524
  5. SEROQUEL [Suspect]
     Dates: start: 20050525, end: 20050531
  6. SEROQUEL [Suspect]
     Dates: start: 20050525, end: 20050531
  7. SEROQUEL [Suspect]
     Dates: start: 20050601
  8. SEROQUEL [Suspect]
     Dates: start: 20050601
  9. SEROQUEL [Suspect]
     Dates: start: 20050629
  10. SEROQUEL [Suspect]
     Dates: start: 20050629
  11. CIPRALEX [Suspect]
     Indication: DEPRESSION
     Route: 048
     Dates: start: 20050601
  12. CIPRALEX [Suspect]
     Indication: BIPOLAR DISORDER
     Route: 048
     Dates: start: 20050601
  13. CIPRALEX [Suspect]
     Route: 048
     Dates: start: 20050614, end: 20050618
  14. CIPRALEX [Suspect]
     Route: 048
     Dates: start: 20050614, end: 20050618
  15. CIPRALEX [Suspect]
     Route: 048
     Dates: start: 20050619
  16. CIPRALEX [Suspect]
     Route: 048
     Dates: start: 20050619
  17. CIPRALEX [Suspect]
     Route: 048
     Dates: start: 20050629
  18. CIPRALEX [Suspect]
     Route: 048
     Dates: start: 20050629
  19. CIPRALEX [Suspect]
     Route: 048
     Dates: start: 20050728
  20. CIPRALEX [Suspect]
     Route: 048
     Dates: start: 20050728

REACTIONS (4)
  - ABORTION INCOMPLETE [None]
  - ABORTION MISSED [None]
  - DRUG EXPOSURE DURING PREGNANCY [None]
  - PREGNANCY [None]
